FAERS Safety Report 24555513 (Version 1)
Quarter: 2024Q4

REPORT INFORMATION
  Report Type: Spontaneous
  Country: DE (occurrence: DE)
  Receive Date: 20241028
  Receipt Date: 20241028
  Transmission Date: 20250115
  Serious: Yes (Life-Threatening, Other)
  Sender: TAKEDA
  Company Number: DE-PEI-202400023056

PATIENT
  Age: 60 Year
  Sex: Female
  Weight: 105 kg

DRUGS (1)
  1. ALBUMIN HUMAN [Suspect]
     Active Substance: ALBUMIN HUMAN
     Indication: Pancreatitis bacterial
     Dosage: 10 GRAM
     Route: 065
     Dates: start: 20241001

REACTIONS (6)
  - Dyspnoea [Unknown]
  - Oxygen saturation decreased [Unknown]
  - Rash [Unknown]
  - Paraesthesia [Unknown]
  - Anaphylactic shock [Unknown]
  - Respiratory failure [Unknown]

NARRATIVE: CASE EVENT DATE: 20241005
